FAERS Safety Report 13854533 (Version 1)
Quarter: 2017Q3

REPORT INFORMATION
  Report Type: Spontaneous
  Country: US (occurrence: US)
  Receive Date: 20170810
  Receipt Date: 20170810
  Transmission Date: 20171127
  Serious: Yes (Hospitalization)
  Sender: FDA-Public Use
  Company Number: None

PATIENT
  Age: 14 Year
  Sex: Male
  Weight: 73.5 kg

DRUGS (6)
  1. CYTARABINE. [Suspect]
     Active Substance: CYTARABINE
     Dates: end: 20170711
  2. METHOTREXATE. [Suspect]
     Active Substance: METHOTREXATE
     Dates: end: 20170719
  3. VINCRISTINE SULFATE. [Suspect]
     Active Substance: VINCRISTINE SULFATE
     Dates: end: 20170719
  4. PREDNISONE. [Suspect]
     Active Substance: PREDNISONE
     Dates: end: 20170723
  5. DAUNORUBICIN [Suspect]
     Active Substance: DAUNORUBICIN
     Dates: end: 20170719
  6. ONCASPAR [Suspect]
     Active Substance: PEGASPARGASE
     Dates: end: 20170715

REACTIONS (23)
  - Pyrexia [None]
  - Aeromonas test positive [None]
  - Polyuria [None]
  - Grunting [None]
  - White blood cell disorder [None]
  - Pulmonary oedema [None]
  - Hyperphosphataemia [None]
  - Septic shock [None]
  - Hypotension [None]
  - Blood bilirubin increased [None]
  - Hyperkalaemia [None]
  - Fatigue [None]
  - Pleural effusion [None]
  - Anuria [None]
  - Abdominal pain [None]
  - Vomiting [None]
  - Enterococcus test positive [None]
  - Tachycardia [None]
  - Atelectasis [None]
  - Tachypnoea [None]
  - Respiratory distress [None]
  - Hyperbilirubinaemia [None]
  - Colitis [None]

NARRATIVE: CASE EVENT DATE: 20170720
